FAERS Safety Report 8610275-0 (Version None)
Quarter: 2012Q3

REPORT INFORMATION
  Report Type: 
  Country: None (occurrence: None)
  Receive Date: 20120810
  Receipt Date: 20120810
  Transmission Date: 20120928
  Serious: Yes (Life-Threatening, Hospitalization)
  Sender: FDA-Public Use
  Company Number: None

PATIENT
  Age: 22 Year
  Sex: Male
  Weight: 93.1 kg

DRUGS (1)
  1. METHOTREXATE [Suspect]
     Dosage: 42.3 MG EVERY FRIDAY PO
     Route: 048

REACTIONS (14)
  - PAIN [None]
  - PANCYTOPENIA [None]
  - CONVULSION [None]
  - TOXICITY TO VARIOUS AGENTS [None]
  - ABDOMINAL PAIN [None]
  - NAUSEA [None]
  - VOMITING [None]
  - ARTHRALGIA [None]
  - HYPERGLYCAEMIA [None]
  - CHEST PAIN [None]
  - UNRESPONSIVE TO STIMULI [None]
  - PYREXIA [None]
  - MYALGIA [None]
  - DISORIENTATION [None]
